FAERS Safety Report 15558852 (Version 3)
Quarter: 2019Q1

REPORT INFORMATION
  Report Type: Report from Study
  Country: None (occurrence: CA)
  Receive Date: 20181029
  Receipt Date: 20190306
  Transmission Date: 20190417
  Serious: Yes (Other)
  Sender: FDA-Public Use
  Company Number: CA-ABBVIE-18K-028-2531451-00

PATIENT
  Sex: Female

DRUGS (3)
  1. HUMIRA [Suspect]
     Active Substance: ADALIMUMAB
     Indication: PSORIATIC ARTHROPATHY
     Route: 058
     Dates: start: 20170115
  2. WARFARIN [Suspect]
     Active Substance: WARFARIN
     Indication: ATRIAL FIBRILLATION
     Route: 065
  3. CORTISONE [Suspect]
     Active Substance: CORTISONE\HYDROCORTISONE
     Indication: BURSITIS
     Route: 065
     Dates: start: 201810, end: 201810

REACTIONS (8)
  - Fatigue [Not Recovered/Not Resolved]
  - Weight decreased [Unknown]
  - Heart rate decreased [Not Recovered/Not Resolved]
  - Hypertension [Not Recovered/Not Resolved]
  - Cardiac flutter [Unknown]
  - Bursitis [Not Recovered/Not Resolved]
  - Needle issue [Unknown]
  - Injection site pain [Unknown]

NARRATIVE: CASE EVENT DATE: 2018
